FAERS Safety Report 15905890 (Version 1)
Quarter: 2019Q1

REPORT INFORMATION
  Report Type: Spontaneous
  Country: JP (occurrence: JP)
  Receive Date: 20190204
  Receipt Date: 20190204
  Transmission Date: 20190417
  Serious: Yes (Hospitalization)
  Sender: FDA-Public Use
  Company Number: JP-JUBILANT CADISTA PHARMACEUTICALS-2019JUB00030

PATIENT
  Age: 44 Year
  Sex: Male

DRUGS (4)
  1. HALOPERIDOL. [Suspect]
     Active Substance: HALOPERIDOL
     Dosage: 9 MG, 1X/DAY
     Route: 065
  2. RISPERIDONE. [Suspect]
     Active Substance: RISPERIDONE
     Indication: PARANOIA
     Dosage: UNKNOWN INITIAL DOSE
     Route: 065
  3. RISPERIDONE. [Suspect]
     Active Substance: RISPERIDONE
     Dosage: 12 MG, 1X/DAY
     Route: 065
  4. HALOPERIDOL. [Suspect]
     Active Substance: HALOPERIDOL
     Indication: PSYCHOTIC DISORDER
     Dosage: UNKNOWN INITIAL TREATMENT
     Route: 065

REACTIONS (7)
  - Screaming [None]
  - Neuroleptic malignant syndrome [Recovered/Resolved]
  - Rapid eye movement sleep behaviour disorder [Recovered/Resolved]
  - Drug ineffective [None]
  - Aggression [None]
  - Extrapyramidal disorder [None]
  - Nightmare [None]
